FAERS Safety Report 20820478 (Version 2)
Quarter: 2022Q2

REPORT INFORMATION
  Report Type: Spontaneous
  Country: US (occurrence: US)
  Receive Date: 20220512
  Receipt Date: 20220601
  Transmission Date: 20220721
  Serious: Yes (Other)
  Sender: FDA-Public Use
  Company Number: US-TEVA-2022-US-2035087

PATIENT
  Age: 71 Year
  Sex: Male

DRUGS (7)
  1. MYCOPHENOLATE MOFETIL [Interacting]
     Active Substance: MYCOPHENOLATE MOFETIL
     Indication: Immunosuppressant drug therapy
     Route: 065
  2. PREDNISONE [Interacting]
     Active Substance: PREDNISONE
     Indication: Immunosuppressant drug therapy
     Dosage: INITIAL DOSE NOT STATED
     Route: 065
  3. PREDNISONE [Interacting]
     Active Substance: PREDNISONE
     Dosage: 5 MILLIGRAM DAILY;
     Route: 065
  4. TOZINAMERAN [Interacting]
     Active Substance: TOZINAMERAN
     Indication: Immunisation
     Dosage: 4 DOSES?PFIZER SARS-COV-2 VACCINE
     Route: 065
  5. RITUXIMAB [Interacting]
     Active Substance: RITUXIMAB
     Indication: Immunosuppressant drug therapy
     Route: 065
  6. TACROLIMUS [Interacting]
     Active Substance: TACROLIMUS
     Indication: Immunosuppressant drug therapy
     Dosage: INITIAL DOSE NOT STATED
     Route: 065
  7. TACROLIMUS [Interacting]
     Active Substance: TACROLIMUS
     Dosage: GOAL TROUGH 4-6
     Route: 065

REACTIONS (2)
  - Therapy non-responder [Unknown]
  - Drug interaction [Unknown]
